FAERS Safety Report 4629411-6 (Version None)
Quarter: 2005Q2

REPORT INFORMATION
  Report Type: 
  Country: None (occurrence: None)
  Receive Date: 20050405
  Receipt Date: 20050322
  Transmission Date: 20051028
  Serious: Yes (Other)
  Sender: FDA-Public Use
  Company Number: DSA_26034_2005

PATIENT
  Age: 52 Year
  Sex: Male

DRUGS (2)
  1. MONO-TILDIEM - SLOW RELEASE [Suspect]
     Indication: LABILE HYPERTENSION
     Dosage: 200 MG Q DAY PO
     Route: 048
     Dates: start: 20040730, end: 20040826
  2. FLUCONAZOLE [Suspect]
     Indication: CANDIDIASIS
     Dosage: 100 MG Q DAY PO
     Route: 048
     Dates: start: 20040812, end: 20040826

REACTIONS (4)
  - ASTHENIA [None]
  - HYPOTENSION [None]
  - LOSS OF CONSCIOUSNESS [None]
  - MALAISE [None]
